FAERS Safety Report 17567674 (Version 1)
Quarter: 2020Q1

REPORT INFORMATION
  Report Type: Report from Study
  Country: US (occurrence: US)
  Receive Date: 20200320
  Receipt Date: 20200320
  Transmission Date: 20200409
  Serious: Yes (Death)
  Sender: FDA-Public Use
  Company Number: US-ASTRAZENECA-2020SE39977

PATIENT
  Sex: Female

DRUGS (11)
  1. ZOFRAN [Concomitant]
     Active Substance: ONDANSETRON HYDROCHLORIDE
  2. GABAPENTIN. [Concomitant]
     Active Substance: GABAPENTIN
  3. AVASTIN [Concomitant]
     Active Substance: BEVACIZUMAB
  4. DEXAMETHASONE. [Concomitant]
     Active Substance: DEXAMETHASONE
  5. CARBOPLATIN. [Concomitant]
     Active Substance: CARBOPLATIN
  6. CITRACAL + D [Concomitant]
     Active Substance: CALCIUM CITRATE\VITAMIN D
  7. ALIMTA [Concomitant]
     Active Substance: PEMETREXED DISODIUM
  8. ZOMETA [Concomitant]
     Active Substance: ZOLEDRONIC ACID
  9. TAGRISSO [Suspect]
     Active Substance: OSIMERTINIB
     Indication: LUNG NEOPLASM MALIGNANT
     Route: 048
  10. FOLIC ACID. [Concomitant]
     Active Substance: FOLIC ACID
  11. POTASSIUM [Concomitant]
     Active Substance: POTASSIUM

REACTIONS (1)
  - Death [Fatal]
